FAERS Safety Report 9120439 (Version 2)
Quarter: 2013Q1

REPORT INFORMATION
  Report Type: Report from Study
  Country: DE (occurrence: DE)
  Receive Date: 20130226
  Receipt Date: 20130325
  Transmission Date: 20140127
  Serious: Yes (Disabling, Other)
  Sender: FDA-Public Use
  Company Number: DE-ROCHE-1193574

PATIENT
  Sex: Female

DRUGS (3)
  1. RANIBIZUMAB [Suspect]
     Indication: AGE-RELATED MACULAR DEGENERATION
     Route: 050
     Dates: start: 20121022
  2. RANIBIZUMAB [Suspect]
     Route: 050
     Dates: start: 20121119
  3. RANIBIZUMAB [Suspect]
     Route: 050
     Dates: start: 20121217

REACTIONS (3)
  - Detachment of retinal pigment epithelium [Unknown]
  - Retinal scar [Not Recovered/Not Resolved]
  - No therapeutic response [Unknown]
